FAERS Safety Report 25871487 (Version 2)
Quarter: 2025Q4

REPORT INFORMATION
  Report Type: Spontaneous
  Country: US (occurrence: US)
  Receive Date: 20251001
  Receipt Date: 20251107
  Transmission Date: 20260117
  Serious: No
  Sender: KALEO, INC.
  Company Number: US-Kaleo, Inc.-2024KL000047

PATIENT

DRUGS (2)
  1. AUVI-Q [Suspect]
     Active Substance: EPINEPHRINE
     Dosage: .1 MILLIGRAM, ONCE
  2. AUVI-Q [Suspect]
     Active Substance: EPINEPHRINE

REACTIONS (1)
  - Accidental exposure to product [Unknown]
